FAERS Safety Report 5816099-1 (Version None)
Quarter: 2008Q3

REPORT INFORMATION
  Report Type: 
  Country: None (occurrence: None)
  Receive Date: 20080716
  Receipt Date: 20080716
  Transmission Date: 20090109
  Serious: Yes (Life-Threatening, Other)
  Sender: FDA-Public Use
  Company Number: None

PATIENT
  Age: 64 Year
  Sex: Female
  Weight: 68.0396 kg

DRUGS (1)
  1. KLONOPIN [Suspect]
     Indication: INSOMNIA
     Dosage: 1 TIME AT BEDTIME
     Dates: start: 20060110, end: 20070731

REACTIONS (9)
  - CONFUSIONAL STATE [None]
  - DEPRESSION [None]
  - ECHOPRAXIA [None]
  - FEELING ABNORMAL [None]
  - HEADACHE [None]
  - LOSS OF EMPLOYMENT [None]
  - PANIC ATTACK [None]
  - RASH [None]
  - VISUAL IMPAIRMENT [None]
